FAERS Safety Report 7416383-4 (Version None)
Quarter: 2011Q2

REPORT INFORMATION
  Report Type: 
  Country: None (occurrence: None)
  Receive Date: 20110414
  Receipt Date: 20110414
  Transmission Date: 20111010
  Serious: Yes (Death)
  Sender: FDA-Public Use
  Company Number: CO-PFIZER INC-2011080872

PATIENT
  Age: 62 Year
  Sex: Female

DRUGS (5)
  1. METOPROLOL [Concomitant]
     Dosage: 50 MG, 2X/DAY
  2. NIFEDIPINE [Concomitant]
     Dosage: 30 MG, 1X/DAY
  3. LIPITOR [Suspect]
     Indication: DYSLIPIDAEMIA
     Dosage: 20 MG, 1X/DAY
     Dates: start: 20080101
  4. HYDROCHLOROTHIAZIDE [Concomitant]
     Dosage: 25 MG, 1X/DAY
  5. LOSARTAN [Concomitant]
     Dosage: UNK,TABLET ONCE DAILY

REACTIONS (1)
  - DEATH [None]
